FAERS Safety Report 20518675 (Version 2)
Quarter: 2022Q1

REPORT INFORMATION
  Report Type: Report from Study
  Country: CA (occurrence: CA)
  Receive Date: 20220225
  Receipt Date: 20220324
  Transmission Date: 20220423
  Serious: Yes (Hospitalization)
  Sender: FDA-Public Use
  Company Number: CA-ABBVIE-22K-028-4241236-00

PATIENT
  Age: 48 Year
  Sex: Female

DRUGS (1)
  1. RINVOQ [Suspect]
     Active Substance: UPADACITINIB
     Indication: Rheumatoid arthritis
     Route: 048
     Dates: start: 20210426, end: 20211228

REACTIONS (12)
  - Illness [Recovered/Resolved]
  - Pneumonia [Recovered/Resolved]
  - Laryngitis [Recovered/Resolved]
  - Sinusitis [Unknown]
  - Abdominal discomfort [Unknown]
  - Musculoskeletal disorder [Unknown]
  - Gastrooesophageal reflux disease [Unknown]
  - Loss of personal independence in daily activities [Unknown]
  - Arthropathy [Unknown]
  - Blood test abnormal [Unknown]
  - Thrombosis [Unknown]
  - Pharyngitis [Unknown]

NARRATIVE: CASE EVENT DATE: 20220201
